FAERS Safety Report 8448238-0 (Version None)
Quarter: 2012Q2

REPORT INFORMATION
  Report Type: 
  Country: None (occurrence: None)
  Receive Date: 20120619
  Receipt Date: 20120613
  Transmission Date: 20120825
  Serious: Yes (Hospitalization)
  Sender: FDA-Public Use
  Company Number: PHHY2012NL052047

PATIENT
  Age: 25 Year
  Sex: Male

DRUGS (1)
  1. PROPRANOLOL [Suspect]
     Indication: TACHYCARDIA
     Dosage: 60 MG, QD

REACTIONS (10)
  - OBESITY [None]
  - EMOTIONAL DISTRESS [None]
  - DYSLIPIDAEMIA [None]
  - METABOLIC SYNDROME [None]
  - HYPERTENSION [None]
  - DECREASED ACTIVITY [None]
  - HYPERGLYCAEMIA [None]
  - SKIN LESION [None]
  - PSORIASIS [None]
  - ERYTHEMA [None]
